FAERS Safety Report 4696337-1 (Version None)
Quarter: 2005Q2

REPORT INFORMATION
  Report Type: 
  Country: None (occurrence: None)
  Receive Date: 20050620
  Receipt Date: 20050606
  Transmission Date: 20051028
  Serious: Yes (Other)
  Sender: FDA-Public Use
  Company Number: 2005062853

PATIENT
  Age: 63 Year
  Sex: Male
  Weight: 79.8331 kg

DRUGS (3)
  1. BEXTRA [Suspect]
     Indication: BACK INJURY
     Dosage: 20 MG (20 MG, 1 IN 1 D), ORAL
     Route: 048
     Dates: start: 20040101
  2. ANTIHYPERTENSIVES             (ANTIHYPERTENSIVES) [Concomitant]
  3. CHOLESTEROL- AND TRIGLYCERIDE REDUCERS [Concomitant]

REACTIONS (3)
  - BRONCHITIS [None]
  - FEELING ABNORMAL [None]
  - TRANSIENT ISCHAEMIC ATTACK [None]
